FAERS Safety Report 7310195-8 (Version None)
Quarter: 2011Q1

REPORT INFORMATION
  Report Type: 
  Country: None (occurrence: None)
  Receive Date: 20110224
  Receipt Date: 20110217
  Transmission Date: 20110831
  Serious: No
  Sender: FDA-Public Use
  Company Number: US-PFIZER INC-2011036022

PATIENT
  Sex: Male
  Weight: 84 kg

DRUGS (1)
  1. ADVIL LIQUI-GELS [Suspect]
     Indication: ENDODONTIC PROCEDURE
     Dosage: 200 MG, AS NEEDED
     Route: 048
     Dates: start: 20110215

REACTIONS (2)
  - SOMNOLENCE [None]
  - HYPERSOMNIA [None]
